FAERS Safety Report 18400431 (Version 9)
Quarter: 2021Q1

REPORT INFORMATION
  Report Type: Spontaneous
  Country: ES (occurrence: ES)
  Receive Date: 20201019
  Receipt Date: 20210310
  Transmission Date: 20210419
  Serious: Yes (Death)
  Sender: FDA-Public Use
  Company Number: ES-PFIZER INC-2020358521

PATIENT
  Age: 52 Year
  Sex: Male

DRUGS (11)
  1. HYDROXYCHLOROQUINE [Concomitant]
     Active Substance: HYDROXYCHLOROQUINE
     Indication: COVID-19
     Dosage: UNK
  2. TOCILIZUMAB. [Concomitant]
     Active Substance: TOCILIZUMAB
     Indication: INFLAMMATION
  3. VORICONAZOLE. [Suspect]
     Active Substance: VORICONAZOLE
     Indication: ASPERGILLUS INFECTION
     Dosage: 400 MG, 2X/DAY
     Route: 042
     Dates: start: 20200405, end: 20200409
  4. PIPERACILIN/TAZOBACTAM [Concomitant]
     Active Substance: PIPERACILLIN SODIUM\TAZOBACTAM SODIUM
     Dosage: UNK
  5. CRESEMBA [Suspect]
     Active Substance: ISAVUCONAZONIUM SULFATE
     Indication: ASPERGILLUS INFECTION
     Dosage: 200 MG, 1X/DAY
     Route: 042
     Dates: start: 20200412, end: 20200416
  6. CEFTRIAXONE SODIUM. [Concomitant]
     Active Substance: CEFTRIAXONE SODIUM
     Dosage: UNK
  7. CRESEMBA [Suspect]
     Active Substance: ISAVUCONAZONIUM SULFATE
     Indication: BRONCHOPULMONARY ASPERGILLOSIS
     Dosage: 200 MG, 3X/DAY
     Route: 042
     Dates: start: 20200410, end: 20200411
  8. TOCILIZUMAB. [Concomitant]
     Active Substance: TOCILIZUMAB
     Indication: RESPIRATORY DISTRESS
     Dosage: UNK
  9. LINEZOLID. [Concomitant]
     Active Substance: LINEZOLID
     Dosage: UNK
  10. LOPINAVIR/RITONAVIR [Concomitant]
     Active Substance: LOPINAVIR\RITONAVIR
     Indication: COVID-19
     Dosage: UNK
  11. INTERFERON BETA?1B [Concomitant]
     Active Substance: INTERFERON BETA-1B
     Indication: COVID-19
     Dosage: UNK

REACTIONS (2)
  - Respiratory failure [Fatal]
  - Septic shock [Fatal]

NARRATIVE: CASE EVENT DATE: 20200417
